FAERS Safety Report 16837213 (Version 1)
Quarter: 2019Q3

REPORT INFORMATION
  Report Type: Spontaneous
  Country: BR (occurrence: BR)
  Receive Date: 20190923
  Receipt Date: 20190923
  Transmission Date: 20191005
  Serious: No
  Sender: FDA-Public Use
  Company Number: BR-NOVEN PHARMACEUTICALS, INC.-BR2019000158

PATIENT

DRUGS (2)
  1. BRINTELLIX [Concomitant]
     Active Substance: VORTIOXETINE HYDROBROMIDE
  2. ESTRADIOL/NORETHISTERONE ACETATE [Suspect]
     Active Substance: ESTRADIOL\NORETHINDRONE ACETATE
     Indication: HORMONE REPLACEMENT THERAPY
     Dosage: 50/140 MCG, 0.5 DF, Q2W
     Route: 062
     Dates: start: 201810

REACTIONS (3)
  - Product quality issue [Not Recovered/Not Resolved]
  - Wrong technique in product usage process [Unknown]
  - Application site pain [Unknown]
